FAERS Safety Report 12773268 (Version 1)
Quarter: 2016Q3

REPORT INFORMATION
  Report Type: Spontaneous
  Country: US (occurrence: US)
  Receive Date: 20160922
  Receipt Date: 20160922
  Transmission Date: 20161109
  Serious: No
  Sender: FDA-Public Use
  Company Number: US-BIOGEN-2016BI00291543

PATIENT
  Sex: Female
  Weight: 120.31 kg

DRUGS (1)
  1. TECFIDERA [Suspect]
     Active Substance: DIMETHYL FUMARATE
     Indication: MULTIPLE SCLEROSIS
     Dosage: MAINTENANCE DOSE
     Route: 048

REACTIONS (7)
  - Nausea [Unknown]
  - Viral infection [Unknown]
  - Drug dose omission [Recovered/Resolved]
  - Depression [Unknown]
  - Renal pain [Unknown]
  - Weight increased [Unknown]
  - Back pain [Unknown]
